FAERS Safety Report 17479428 (Version 1)
Quarter: 2020Q1

REPORT INFORMATION
  Report Type: Report from Study
  Country: DK (occurrence: DK)
  Receive Date: 20200228
  Receipt Date: 20200228
  Transmission Date: 20200409
  Serious: Yes (Life-Threatening, Hospitalization)
  Sender: FDA-Public Use
  Company Number: DK-MYLANLABS-2020M1022671

PATIENT
  Age: 55 Year
  Sex: Female
  Weight: 84 kg

DRUGS (3)
  1. LERCASTAD [Concomitant]
     Indication: HYPERTENSION
     Dosage: UNK
     Route: 065
     Dates: start: 20181108
  2. PALBOCICLIB [Suspect]
     Active Substance: PALBOCICLIB
     Indication: ENDOMETRIAL CANCER RECURRENT
     Route: 065
  3. LETROZOLE. [Suspect]
     Active Substance: LETROZOLE
     Indication: ENDOMETRIAL CANCER RECURRENT
     Dosage: 2.5 MG, QD
     Route: 048
     Dates: start: 20181011, end: 20200106

REACTIONS (7)
  - Thrombosis [Unknown]
  - Low density lipoprotein increased [Unknown]
  - Cerebrovascular accident [Recovered/Resolved]
  - Facial paralysis [Unknown]
  - Blood pressure increased [Unknown]
  - Blood cholesterol increased [Unknown]
  - Paresis [Unknown]

NARRATIVE: CASE EVENT DATE: 20200102
